FAERS Safety Report 9969634 (Version 2)
Quarter: 2014Q2

REPORT INFORMATION
  Report Type: Spontaneous
  Country: US (occurrence: None)
  Receive Date: 20140130
  Receipt Date: 20140501
  Transmission Date: 20141212
  Serious: No
  Sender: FDA-Public Use
  Company Number: PHEH2013US025872

PATIENT
  Age: 71 Year
  Sex: Female
  Weight: 92 kg

DRUGS (13)
  1. ARCAPTA (INDACATEROL) UNKNOWN [Suspect]
     Indication: CHRONIC OBSTRUCTIVE PULMONARY DISEASE
     Route: 055
     Dates: start: 2012
  2. ARCAPTA (INDACATEROL) UNKNOWN [Suspect]
     Indication: EMPHYSEMA
     Route: 055
     Dates: start: 2012
  3. ALBUTEROL (SALBUTAMOL) [Concomitant]
  4. RAMIPRIL (RAMIPRIL) [Concomitant]
  5. FLUOXETINE (FLUOXETINE) [Concomitant]
  6. VERAPAMIL (VERAPAMIL) [Concomitant]
  7. WARFARIN (WARFARIN) [Concomitant]
  8. SPIROLACTONA (SPIRONOLACTONE) [Concomitant]
  9. VENTOLINE (SALBUTAMOL) [Concomitant]
  10. PROZAC (FLUOXETINE HYDROCHLORIDE) [Concomitant]
  11. NORCO (HYDROCODONE BITARTRATE, PARACETAMOL) [Concomitant]
  12. PREVACID (LANSOPRAZOLE) [Concomitant]
  13. LISINOPRIL (LISINOPRIL) [Concomitant]

REACTIONS (1)
  - Incorrect route of drug administration [None]
